FAERS Safety Report 8102630-2 (Version None)
Quarter: 2012Q1

REPORT INFORMATION
  Report Type: 
  Country: None (occurrence: None)
  Receive Date: 20120126
  Receipt Date: 20120111
  Transmission Date: 20120608
  Serious: Yes (Death, Other)
  Sender: FDA-Public Use
  Company Number: 2011SGN00355

PATIENT
  Age: 40 Year
  Sex: Male

DRUGS (3)
  1. PREDNISONE TAB [Concomitant]
  2. ADCETRIS [Suspect]
     Indication: HODGKIN'S DISEASE
     Dosage: 1.8 MG/KG, Q21D
     Dates: start: 20111101, end: 20111101
  3. PROGRAF [Concomitant]

REACTIONS (5)
  - HEADACHE [None]
  - HAEMOPTYSIS [None]
  - DIARRHOEA [None]
  - UPPER RESPIRATORY TRACT CONGESTION [None]
  - METASTASES TO LUNG [None]
